FAERS Safety Report 17210448 (Version 1)
Quarter: 2019Q4

REPORT INFORMATION
  Report Type: Report from Study
  Country: TW (occurrence: TW)
  Receive Date: 20191227
  Receipt Date: 20191227
  Transmission Date: 20200122
  Serious: Yes (Death, Other)
  Sender: FDA-Public Use
  Company Number: TW-GILEAD-2019-0444286

PATIENT
  Age: 67 Year
  Sex: Male

DRUGS (4)
  1. ENTECAVIR. [Concomitant]
     Active Substance: ENTECAVIR
     Indication: HEPATITIS B
  2. TENOFOVIR DISOPROXIL FUMARATE. [Suspect]
     Active Substance: TENOFOVIR DISOPROXIL FUMARATE
     Indication: HEPATITIS B REACTIVATION
     Dosage: UNK
     Route: 065
  3. LAMIVUDINE. [Concomitant]
     Active Substance: LAMIVUDINE
     Indication: HEPATITIS B
  4. TENOFOVIR DISOPROXIL FUMARATE. [Suspect]
     Active Substance: TENOFOVIR DISOPROXIL FUMARATE
     Indication: ANTIVIRAL PROPHYLAXIS
     Dosage: UNK
     Route: 065

REACTIONS (2)
  - Hepatitis fulminant [Fatal]
  - Hepatitis B reactivation [Not Recovered/Not Resolved]
